FAERS Safety Report 6005377-1 (Version None)
Quarter: 2008Q4

REPORT INFORMATION
  Report Type: 
  Country: None (occurrence: None)
  Receive Date: 20081216
  Receipt Date: 20081209
  Transmission Date: 20090506
  Serious: Yes (Hospitalization)
  Sender: FDA-Public Use
  Company Number: US-GILEAD-2008-0019241

PATIENT
  Age: 40 Year
  Sex: Male

DRUGS (5)
  1. TRUVADA [Suspect]
     Indication: HIV INFECTION
     Dates: start: 20040101
  2. PERCOCET [Suspect]
  3. VALIUM [Suspect]
  4. REYATAZ [Concomitant]
     Dates: start: 20040101
  5. NORVIR [Concomitant]
     Dates: start: 20040101

REACTIONS (2)
  - RENAL FAILURE [None]
  - SUICIDE ATTEMPT [None]
